FAERS Safety Report 6043867-6 (Version None)
Quarter: 2009Q1

REPORT INFORMATION
  Report Type: 
  Country: None (occurrence: None)
  Receive Date: 20090120
  Receipt Date: 20090114
  Transmission Date: 20090719
  Serious: Yes (Other)
  Sender: FDA-Public Use
  Company Number: DE-BRISTOL-MYERS SQUIBB COMPANY-14471528

PATIENT
  Age: 45 Year
  Sex: Male
  Weight: 85 kg

DRUGS (4)
  1. REYATAZ [Suspect]
     Indication: HIV INFECTION
  2. TRUVADA [Suspect]
     Indication: HIV INFECTION
  3. NORVIR [Suspect]
     Indication: HIV INFECTION
  4. DOXEPIN HCL [Concomitant]

REACTIONS (5)
  - FEELING ABNORMAL [None]
  - GINGIVITIS [None]
  - INSOMNIA [None]
  - PSYCHOMOTOR HYPERACTIVITY [None]
  - RESTLESSNESS [None]
